FAERS Safety Report 6776787-X (Version None)
Quarter: 2010Q2

REPORT INFORMATION
  Report Type: 
  Country: None (occurrence: None)
  Receive Date: 20100617
  Receipt Date: 20100617
  Transmission Date: 20101027
  Serious: No
  Sender: FDA-Public Use
  Company Number: None

PATIENT
  Age: 66 Year
  Sex: Female
  Weight: 127.7 kg

DRUGS (12)
  1. SPIRONOLACTONE [Suspect]
  2. NOVOLOG [Concomitant]
  3. KAYEXALATE [Concomitant]
  4. CATAPRES [Concomitant]
  5. LANTUS [Concomitant]
  6. LOPRESSOR [Concomitant]
  7. PHENERGAN [Concomitant]
  8. ULTRAM [Concomitant]
  9. ZESTRIL [Concomitant]
  10. METFORMIN HCL [Suspect]
  11. ALEVE (CAPLET) [Suspect]
  12. ZOCOR [Suspect]

REACTIONS (5)
  - BLOOD AMYLASE INCREASED [None]
  - HEPATIC STEATOSIS [None]
  - HEPATITIS ACUTE [None]
  - RENAL CYST [None]
  - SERUM FERRITIN INCREASED [None]
